FAERS Safety Report 14178959 (Version 9)
Quarter: 2018Q3

REPORT INFORMATION
  Report Type: Report from Study
  Country: BR (occurrence: BR)
  Receive Date: 20171110
  Receipt Date: 20180925
  Transmission Date: 20181010
  Serious: Yes (Hospitalization, Other)
  Sender: FDA-Public Use
  Company Number: BR-SA-2016SA167905

PATIENT
  Age: 35 Year
  Sex: Female
  Weight: 64 kg

DRUGS (8)
  1. BENFOTIAMINE [Concomitant]
     Active Substance: BENFOTIAMINE
     Dosage: UNK UNK,UNK
     Route: 065
  2. TAPAZOLE [Suspect]
     Active Substance: METHIMAZOLE
     Dosage: 5 MG
  3. TAPAZOLE [Suspect]
     Active Substance: METHIMAZOLE
     Dosage: 10 MG
  4. BACLOFEN. [Concomitant]
     Active Substance: BACLOFEN
     Dosage: UNK UNK,UNK
     Route: 065
  5. SERTRALINE [Concomitant]
     Active Substance: SERTRALINE HYDROCHLORIDE
     Dosage: UNK UNK,UNK
     Route: 065
  6. CYTIDINE PHOSPHATE SODIUM;HYDROXOCOBALAMIN ACETATE;URIDINE TRIPHOSPHAT [Concomitant]
     Dosage: UNK UNK,UNK
     Route: 065
  7. ALEMTUZUMAB [Suspect]
     Active Substance: ALEMTUZUMAB
     Indication: MULTIPLE SCLEROSIS
     Dosage: 12 MG,UNK
     Route: 041
     Dates: start: 20160702, end: 20160706
  8. FAMPYRA [Suspect]
     Active Substance: DALFAMPRIDINE
     Indication: GAIT DISTURBANCE
     Dosage: UNK UNK,UNK
     Route: 065

REACTIONS (32)
  - Dysgraphia [Recovering/Resolving]
  - Vaginal discharge [Recovering/Resolving]
  - Acne [Not Recovered/Not Resolved]
  - Anaemia [Not Recovered/Not Resolved]
  - Oral herpes [Not Recovered/Not Resolved]
  - CD4 lymphocytes decreased [Not Recovered/Not Resolved]
  - Rickettsiosis [Not Recovered/Not Resolved]
  - Paraesthesia [Not Recovered/Not Resolved]
  - Haemoglobin decreased [Not Recovered/Not Resolved]
  - Urinary tract infection [Recovering/Resolving]
  - Condition aggravated [Not Recovered/Not Resolved]
  - Hypoglobulinaemia [Not Recovered/Not Resolved]
  - CD8 lymphocytes decreased [Not Recovered/Not Resolved]
  - Neck pain [Not Recovered/Not Resolved]
  - Diarrhoea [Recovered/Resolved]
  - Weight decreased [Recovered/Resolved]
  - Immunodeficiency [Not Recovered/Not Resolved]
  - Gait disturbance [Recovering/Resolving]
  - Nervous system disorder [Unknown]
  - Hyperthyroidism [Recovering/Resolving]
  - Musculoskeletal stiffness [Not Recovered/Not Resolved]
  - Visual impairment [Recovering/Resolving]
  - Muscle tightness [Recovering/Resolving]
  - Asthenia [Recovered/Resolved]
  - Therapeutic response decreased [Unknown]
  - Dizziness [Recovered/Resolved]
  - Blood thyroid stimulating hormone decreased [Not Recovered/Not Resolved]
  - Tachycardia [Not Recovered/Not Resolved]
  - Blood immunoglobulin G decreased [Not Recovered/Not Resolved]
  - Feeling hot [Recovering/Resolving]
  - Discomfort [Unknown]
  - Laboratory test abnormal [Not Recovered/Not Resolved]

NARRATIVE: CASE EVENT DATE: 201607
